FAERS Safety Report 14490068 (Version 2)
Quarter: 2018Q1

REPORT INFORMATION
  Report Type: Report from Study
  Country: None (occurrence: US)
  Receive Date: 20180206
  Receipt Date: 20180313
  Transmission Date: 20180509
  Serious: Yes (Other)
  Sender: FDA-Public Use
  Company Number: US-ABBVIE-18K-163-2246869-00

PATIENT
  Age: 52 Year
  Sex: Female
  Weight: 55.39 kg

DRUGS (3)
  1. HUMIRA [Suspect]
     Active Substance: ADALIMUMAB
     Route: 058
     Dates: start: 20180202, end: 20180202
  2. HUMIRA [Suspect]
     Active Substance: ADALIMUMAB
     Route: 058
     Dates: start: 201706, end: 201712
  3. HUMIRA [Suspect]
     Active Substance: ADALIMUMAB
     Indication: RHEUMATOID ARTHRITIS
     Dosage: BEGAN IN FEB OR MAR 2017
     Route: 058
     Dates: start: 2017, end: 201706

REACTIONS (5)
  - Herpes zoster [Recovering/Resolving]
  - Neuralgia [Recovering/Resolving]
  - Joint injury [Recovered/Resolved]
  - Joint effusion [Recovered/Resolved]
  - Rash papular [Recovering/Resolving]

NARRATIVE: CASE EVENT DATE: 2017
